FAERS Safety Report 18594362 (Version 3)
Quarter: 2020Q4

REPORT INFORMATION
  Report Type: Other
  Country: US (occurrence: US)
  Receive Date: 20201209
  Receipt Date: 20201217
  Transmission Date: 20210114
  Serious: Yes (Death)
  Sender: FDA-Public Use
  Company Number: US-ROCHE-2714878

PATIENT
  Age: 77 Year
  Sex: Male
  Weight: 77.18 kg

DRUGS (9)
  1. METOPROLOL TARTRATE. [Concomitant]
     Active Substance: METOPROLOL TARTRATE
     Route: 048
  2. VENTOLIN HFA [Concomitant]
     Active Substance: ALBUTEROL SULFATE
     Indication: PULMONARY FIBROSIS
     Dosage: AS NEEDED
     Route: 055
  3. ESBRIET [Suspect]
     Active Substance: PIRFENIDONE
     Indication: IDIOPATHIC PULMONARY FIBROSIS
     Dosage: WITH MEALS
     Route: 048
     Dates: start: 20180718, end: 202011
  4. PREDNISONE. [Concomitant]
     Active Substance: PREDNISONE
     Route: 048
     Dates: start: 20201019, end: 20201019
  5. AMOXICILLIN. [Concomitant]
     Active Substance: AMOXICILLIN
     Dosage: ONE TABLET TWO TIMES A DAYS FOR SEVEN DAYS
     Route: 048
     Dates: start: 20201016, end: 20201019
  6. LEVOCETIRIZINE [Concomitant]
     Active Substance: LEVOCETIRIZINE
     Route: 048
     Dates: end: 20201018
  7. GEMFIBROZIL. [Concomitant]
     Active Substance: GEMFIBROZIL
     Dosage: ONE TABLET TWO TIMES A DAY
     Route: 048
  8. OMEPRAZOLE. [Concomitant]
     Active Substance: OMEPRAZOLE
     Indication: GASTROOESOPHAGEAL REFLUX DISEASE
     Route: 048
  9. BEVESPI AEROSPHERE [Concomitant]
     Active Substance: FORMOTEROL FUMARATE\GLYCOPYRROLATE
     Indication: PULMONARY FIBROSIS
     Dosage: ONE OR TWO PUFFS IN THE MORNING
     Route: 055
     Dates: start: 2020

REACTIONS (4)
  - Cough [Unknown]
  - Infection [Fatal]
  - Rhinorrhoea [Unknown]
  - COVID-19 [Fatal]

NARRATIVE: CASE EVENT DATE: 20201019
